FAERS Safety Report 9511026 (Version 1)
Quarter: 2013Q3

REPORT INFORMATION
  Report Type: Spontaneous
  Country: US (occurrence: None)
  Receive Date: 20130905
  Receipt Date: 20130905
  Transmission Date: 20140515
  Serious: Yes (Other)
  Sender: FDA-Public Use
  Company Number: US-012833

PATIENT
  Age: 42 Year
  Sex: Female
  Weight: 97.07 kg

DRUGS (10)
  1. ENDOMETRIN [Suspect]
     Indication: IN VITRO FERTILISATION
     Route: 067
     Dates: start: 201301
  2. MENOPUR [Concomitant]
  3. GONAL F [Concomitant]
  4. FOLLISTIM [Concomitant]
  5. GANIRELIX [Concomitant]
  6. HCG [Concomitant]
  7. LUPRON [Concomitant]
  8. HYDROCHLOROTHIAZIDE [Concomitant]
  9. LABETALOL [Concomitant]
  10. METHYLDOPA [Concomitant]

REACTIONS (1)
  - Ectopic pregnancy [None]
